FAERS Safety Report 10186820 (Version 5)
Quarter: 2014Q4

REPORT INFORMATION
  Report Type: Report from Study
  Country: BR (occurrence: BR)
  Receive Date: 20140522
  Receipt Date: 20141117
  Transmission Date: 20150528
  Serious: Yes (Hospitalization, Other)
  Sender: FDA-Public Use
  Company Number: PHHY2012BR087968

PATIENT
  Sex: Male
  Weight: 25 kg

DRUGS (20)
  1. EXJADE [Suspect]
     Active Substance: DEFERASIROX
     Indication: CONGENITAL APLASTIC ANAEMIA
     Dosage: 1 DF (250MG), QD
     Route: 048
  2. EXJADE [Suspect]
     Active Substance: DEFERASIROX
     Dosage: 1 DF (500 MG), QD
     Route: 048
  3. EXJADE [Suspect]
     Active Substance: DEFERASIROX
     Dosage: 1 DF (250 MG), QD
     Route: 048
     Dates: start: 2013, end: 201311
  4. ADEROGYL [Concomitant]
     Dosage: 5 DRP, QD
     Route: 065
  5. DEFEROXAMINE [Suspect]
     Active Substance: DEFEROXAMINE\DEFEROXAMINE MESYLATE
     Indication: CHELATION THERAPY
     Dosage: 500 MG (2 AMPOULES OF 5 ML), QHS
     Route: 042
     Dates: start: 201402
  6. EXJADE [Suspect]
     Active Substance: DEFERASIROX
     Dosage: 125 MG, UNK
     Route: 048
  7. DEFEROXAMINE [Suspect]
     Active Substance: DEFEROXAMINE\DEFEROXAMINE MESYLATE
     Dosage: 500 MG, QHS (1 APPLICATION) AT NIGHT
     Route: 042
     Dates: start: 20140301, end: 20140315
  8. NASACORT [Concomitant]
     Active Substance: TRIAMCINOLONE ACETONIDE
     Indication: RHINITIS
  9. EXJADE [Suspect]
     Active Substance: DEFERASIROX
     Dosage: ALTERNATING BETWEEN 250 AND 125MG
     Route: 048
  10. EXJADE [Suspect]
     Active Substance: DEFERASIROX
     Dosage: 125 MG, QOD
     Route: 048
  11. EXJADE [Suspect]
     Active Substance: DEFERASIROX
     Dosage: 2 DF, (250 MG) QD
     Route: 048
     Dates: start: 2013, end: 201303
  12. EXJADE [Suspect]
     Active Substance: DEFERASIROX
     Dosage: 1 DF (250MG), QD
     Route: 048
  13. ADEROGYL [Concomitant]
     Indication: BONE DISORDER
     Dosage: 5 DRP, QD
     Route: 065
  14. EXJADE [Suspect]
     Active Substance: DEFERASIROX
     Indication: OFF LABEL USE
     Dosage: 2 DF (500 MG), QD
     Route: 048
  15. DEFEROXAMINE [Suspect]
     Active Substance: DEFEROXAMINE\DEFEROXAMINE MESYLATE
     Dosage: 1000 MG, (2 APPLICATIONS) DAILY
     Route: 042
     Dates: start: 20140315, end: 20140427
  16. SOMATROPIN [Concomitant]
     Active Substance: SOMATROPIN
     Indication: BLOOD GROWTH HORMONE ABNORMAL
     Dosage: 4 MG, 1 APPLICATION DAILY
     Route: 065
  17. NASACORT [Concomitant]
     Active Substance: TRIAMCINOLONE ACETONIDE
     Indication: SINUSITIS
     Dosage: UNK UNK, BID
     Route: 065
  18. EXJADE [Suspect]
     Active Substance: DEFERASIROX
     Dosage: 1 DF (125 MG), QOD
     Route: 048
     Dates: start: 2013, end: 201311
  19. DEFEROXAMINE [Suspect]
     Active Substance: DEFEROXAMINE\DEFEROXAMINE MESYLATE
     Dosage: 1000 MG, (1 APPLICATION) DAILY
     Route: 058
     Dates: start: 20140428
  20. DEFEROXAMINE [Suspect]
     Active Substance: DEFEROXAMINE\DEFEROXAMINE MESYLATE
     Dosage: 500 MG (2 AMPOULES OF 5 ML), QHS
     Route: 042

REACTIONS (15)
  - Pain [Unknown]
  - Liver disorder [Recovering/Resolving]
  - Serum ferritin increased [Unknown]
  - Rhinitis [Unknown]
  - Nasal congestion [Recovered/Resolved]
  - Drug ineffective [Recovering/Resolving]
  - Cardiac siderosis [Unknown]
  - Hepatic siderosis [Unknown]
  - Pyrexia [Recovered/Resolved]
  - Dyspnoea [Recovered/Resolved]
  - Adenoidal disorder [Not Recovered/Not Resolved]
  - Fatigue [Unknown]
  - Sinusitis [Unknown]
  - Influenza [Recovered/Resolved]
  - Dermatitis allergic [Not Recovered/Not Resolved]
